FAERS Safety Report 18903028 (Version 1)
Quarter: 2021Q1

REPORT INFORMATION
  Report Type: Spontaneous
  Country: DE (occurrence: DE)
  Receive Date: 20210217
  Receipt Date: 20210217
  Transmission Date: 20210420
  Serious: Yes (Other)
  Sender: FDA-Public Use
  Company Number: DE-TEVA-2021-DE-1879098

PATIENT
  Age: 81 Year
  Sex: Female

DRUGS (3)
  1. AMOXICILLIN?RATIOPHARM 1000MG FILMTABLETTEN [Suspect]
     Active Substance: AMOXICILLIN
     Indication: OROPHARYNGEAL PAIN
  2. AMOXICILLIN?RATIOPHARM 1000MG FILMTABLETTEN [Suspect]
     Active Substance: AMOXICILLIN
     Indication: EAR PAIN
  3. AMOXICILLIN?RATIOPHARM 1000MG FILMTABLETTEN [Suspect]
     Active Substance: AMOXICILLIN
     Indication: PULMONARY PAIN
     Dosage: 3000 MILLIGRAM DAILY;
     Route: 048
     Dates: start: 20210204

REACTIONS (2)
  - Oropharyngeal blistering [Not Recovered/Not Resolved]
  - Herpes virus infection [Unknown]

NARRATIVE: CASE EVENT DATE: 20210208
